FAERS Safety Report 5526156-5 (Version None)
Quarter: 2007Q4

REPORT INFORMATION
  Report Type: 
  Country: None (occurrence: None)
  Receive Date: 20071120
  Receipt Date: 20071108
  Transmission Date: 20080405
  Serious: Yes (Other)
  Sender: FDA-Public Use
  Company Number: CHNY2007DE03387

PATIENT
  Age: 42 Year
  Sex: Male
  Weight: 85 kg

DRUGS (1)
  1. NICOTINE [Suspect]
     Indication: SMOKING CESSATION THERAPY
     Dosage: 21 MG, QD, TRANSDERMAL
     Route: 062
     Dates: start: 20071001, end: 20071001

REACTIONS (5)
  - CIRCULATORY COLLAPSE [None]
  - ERYTHEMA [None]
  - FEELING HOT [None]
  - HYPERTENSION [None]
  - NAUSEA [None]
